FAERS Safety Report 19536379 (Version 5)
Quarter: 2024Q4

REPORT INFORMATION
  Report Type: Spontaneous
  Country: CA (occurrence: CA)
  Receive Date: 20210713
  Receipt Date: 20241106
  Transmission Date: 20250115
  Serious: Yes (Other)
  Sender: ACCORD
  Company Number: CA-ACCORD-188871

PATIENT
  Age: 57 Year
  Sex: Female

DRUGS (8)
  1. OXALIPLATIN [Suspect]
     Active Substance: OXALIPLATIN
     Indication: Colon cancer stage III
     Dosage: SEVEN CYCLES, 21-DAY CYCLE
     Route: 042
  2. PEMETREXED DISODIUM [Suspect]
     Active Substance: PEMETREXED DISODIUM
     Indication: Colon cancer stage III
     Dosage: SEVEN CYCLES, 21-DAY CYCLES, POWDER FOR  SOLUTION
     Route: 042
  3. CYANOCOBALAMIN [Concomitant]
     Active Substance: CYANOCOBALAMIN
     Indication: Supportive care
     Dosage: ONE TO TWO WEEKS PRIOR TO PEMETREXED INJECTED EVERY NINE WEEKS
     Route: 030
  4. DEXAMETHASONE [Concomitant]
     Active Substance: DEXAMETHASONE
     Indication: Supportive care
     Dosage: TAKEN ORALLY TWICE DAILY FOR THREE DAYS STARTING THE DAY PRIOR TO CHEMOTHERAPY
     Route: 048
  5. METOCLOPRAMIDE [Concomitant]
     Active Substance: METOCLOPRAMIDE
     Indication: Vomiting
     Dosage: EVERY 4 H
     Route: 048
  6. ONDANSETRON [Concomitant]
     Active Substance: ONDANSETRON
     Dosage: ONE TABLET TAKEN ORALLY 30-60 MIN PRIOR AND A SECOND TABLET TAKEN AT BEDTIME
     Route: 048
  7. FOLIC ACID [Concomitant]
     Active Substance: FOLIC ACID
     Indication: Supportive care
     Dosage: EVERY 1 DAYS
     Route: 048
  8. OXALIPLATIN [Suspect]
     Active Substance: OXALIPLATIN
     Indication: Colon cancer stage III

REACTIONS (10)
  - Fatigue [Recovered/Resolved]
  - Dysaesthesia [Recovered/Resolved]
  - Off label use [Unknown]
  - Mouth ulceration [Recovered/Resolved]
  - Pruritus [Recovered/Resolved]
  - Neuropathy peripheral [Recovered/Resolved]
  - Rash maculo-papular [Recovered/Resolved]
  - Papillary cystadenoma lymphomatosum [Recovered/Resolved]
  - Malignant neoplasm progression [Recovered/Resolved]
  - Toxicity to various agents [Unknown]
